FAERS Safety Report 7598206-6 (Version None)
Quarter: 2011Q3

REPORT INFORMATION
  Report Type: 
  Country: None (occurrence: None)
  Receive Date: 20110708
  Receipt Date: 20110706
  Transmission Date: 20111222
  Serious: Yes (Hospitalization)
  Sender: FDA-Public Use
  Company Number: JP-ALLERGAN-1106979US

PATIENT
  Age: 43 Year
  Sex: Male

DRUGS (2)
  1. DANTRIUM [Suspect]
     Indication: CEREBRAL PALSY
     Route: 065
     Dates: start: 20110201
  2. BOTOX [Suspect]
     Indication: CEREBRAL PALSY
     Dosage: UNK
     Route: 051
     Dates: start: 20101201, end: 20101201

REACTIONS (8)
  - BLOOD CREATINE PHOSPHOKINASE INCREASED [None]
  - NEUROLEPTIC MALIGNANT SYNDROME [None]
  - CONFUSIONAL STATE [None]
  - INSOMNIA [None]
  - VERBAL ABUSE [None]
  - ANXIETY [None]
  - DEPRESSED MOOD [None]
  - PYREXIA [None]
